FAERS Safety Report 5117680-8 (Version None)
Quarter: 2006Q3

REPORT INFORMATION
  Report Type: 
  Country: None (occurrence: None)
  Receive Date: 20060929
  Receipt Date: 20060818
  Transmission Date: 20061208
  Serious: Yes (Other)
  Sender: FDA-Public Use
  Company Number: DEWYE732218AUG06

PATIENT
  Sex: Male

DRUGS (6)
  1. ENBREL [Suspect]
     Indication: ARTHRITIS
     Route: 058
     Dates: start: 20040603
  2. ENBREL [Interacting]
     Indication: DRUG USE FOR UNKNOWN INDICATION
  3. LANTAREL [Interacting]
     Indication: YERSINIA INFECTION
     Route: 048
     Dates: start: 20050531, end: 20050601
  4. LANTAREL [Interacting]
     Indication: ARTHRITIS
  5. ALLOPURINOL [Concomitant]
     Route: 048
  6. LYRICA [Concomitant]
     Route: 048

REACTIONS (6)
  - ALANINE AMINOTRANSFERASE INCREASED [None]
  - ASPARTATE AMINOTRANSFERASE INCREASED [None]
  - DRUG INEFFECTIVE [None]
  - DRUG INTERACTION [None]
  - GAMMA-GLUTAMYLTRANSFERASE INCREASED [None]
  - HEPATIC ENZYME INCREASED [None]
